FAERS Safety Report 15575767 (Version 1)
Quarter: 2018Q4

REPORT INFORMATION
  Report Type: Report from Study
  Country: IT (occurrence: IT)
  Receive Date: 20181101
  Receipt Date: 20181101
  Transmission Date: 20190205
  Serious: Yes (Hospitalization)
  Sender: FDA-Public Use
  Company Number: IT-PFIZER INC-2018445957

PATIENT
  Age: 15 Year
  Sex: Female
  Weight: 43 kg

DRUGS (3)
  1. DESLORATADINE. [Suspect]
     Active Substance: DESLORATADINE
     Indication: INTENTIONAL SELF-INJURY
     Dosage: 20 MG, SINGLE
     Route: 048
  2. MINIAS [Suspect]
     Active Substance: LORMETAZEPAM
     Indication: INTENTIONAL SELF-INJURY
     Dosage: 10 ML, SINGLE
     Route: 048
  3. LORAZEPAM. [Suspect]
     Active Substance: LORAZEPAM
     Indication: INTENTIONAL SELF-INJURY
     Dosage: 4 MG, SINGLE
     Route: 048

REACTIONS (7)
  - Intentional self-injury [Recovered/Resolved]
  - Sopor [Recovered/Resolved]
  - Confusional state [Recovered/Resolved]
  - Mydriasis [Recovered/Resolved]
  - Asthenia [Recovered/Resolved]
  - Intentional overdose [Recovered/Resolved]
  - Hypotension [Recovered/Resolved]

NARRATIVE: CASE EVENT DATE: 20180724
